FAERS Safety Report 5288073-8 (Version None)
Quarter: 2007Q2

REPORT INFORMATION
  Report Type: 
  Country: None (occurrence: None)
  Receive Date: 20070402
  Receipt Date: 20070402
  Transmission Date: 20071010
  Serious: Yes (Hospitalization)
  Sender: FDA-Public Use
  Company Number: None

PATIENT
  Sex: Female
  Weight: 86.1834 kg

DRUGS (2)
  1. ZELNORM [Suspect]
     Indication: IRRITABLE BOWEL SYNDROME
     Dosage: 6MG TWICE DAILY PO
     Route: 048
     Dates: start: 20050201, end: 20060501
  2. ZELNORM [Suspect]
     Indication: IRRITABLE BOWEL SYNDROME
     Dosage: 3MG TWICE DAILY PO
     Route: 048
     Dates: start: 20060601, end: 20061019

REACTIONS (10)
  - ABDOMINAL PAIN [None]
  - CHANGE OF BOWEL HABIT [None]
  - CHEST PAIN [None]
  - DYSPNOEA [None]
  - HYPOVENTILATION [None]
  - MUSCULOSKELETAL PAIN [None]
  - NECK PAIN [None]
  - PAIN IN EXTREMITY [None]
  - PAIN IN JAW [None]
  - PAINFUL RESPIRATION [None]
